FAERS Safety Report 8346281-3 (Version None)
Quarter: 2012Q2

REPORT INFORMATION
  Report Type: 
  Country: None (occurrence: None)
  Receive Date: 20120509
  Receipt Date: 20120504
  Transmission Date: 20120825
  Serious: Yes (Death)
  Sender: FDA-Public Use
  Company Number: US-ASTELLAS-2012US003608

PATIENT
  Sex: Female
  Weight: 48 kg

DRUGS (4)
  1. AZATHIOPRINE [Suspect]
     Indication: PRODUCT USED FOR UNKNOWN INDICATION
     Dosage: UNK
     Route: 065
  2. PROGRAF [Suspect]
     Indication: LUNG TRANSPLANT
     Dosage: 3 MG, BID
     Route: 048
     Dates: start: 20090604, end: 20120411
  3. PREDNISONE TAB [Suspect]
     Indication: PRODUCT USED FOR UNKNOWN INDICATION
     Dosage: UNK
     Route: 065
  4. PROGRAF [Suspect]
     Dosage: 1 MG, UID/QD
     Route: 048

REACTIONS (2)
  - RENAL FAILURE [None]
  - OFF LABEL USE [None]
